FAERS Safety Report 9118370 (Version 2)
Quarter: 2013Q1

REPORT INFORMATION
  Report Type: Spontaneous
  Country: IT (occurrence: None)
  Receive Date: 20130128
  Receipt Date: 20130201
  Transmission Date: 20140127
  Serious: Yes (Hospitalization)
  Sender: FDA-Public Use
  Company Number: 2013AP000124

PATIENT
  Age: 63 Year
  Sex: Female

DRUGS (1)
  1. LEVOFLOXACIN [Suspect]
     Indication: CYSTITIS HAEMORRHAGIC
     Dosage: UNKNOWN     UNKNOWN?UNKNOWN     UNKNOWN

REACTIONS (6)
  - Status epilepticus [None]
  - Pyrexia [None]
  - White blood cell count increased [None]
  - Blood creatinine increased [None]
  - White matter lesion [None]
  - CSF glucose increased [None]
